FAERS Safety Report 5827697-3 (Version None)
Quarter: 2008Q3

REPORT INFORMATION
  Report Type: 
  Country: None (occurrence: None)
  Receive Date: 20080728
  Receipt Date: 20080715
  Transmission Date: 20090109
  Serious: Yes (Other)
  Sender: FDA-Public Use
  Company Number: 220006M08CAN

PATIENT
  Age: 74 Year
  Sex: Male
  Weight: 93 kg

DRUGS (1)
  1. SAIZEN [Suspect]
     Indication: OFF LABEL USE
     Dosage: 0.12, SUBCUTANEOUS
     Route: 058
     Dates: start: 20080506

REACTIONS (3)
  - BRAIN OEDEMA [None]
  - HYPOTHALAMO-PITUITARY DISORDER [None]
  - OFF LABEL USE [None]
